FAERS Safety Report 24955062 (Version 2)
Quarter: 2025Q1

REPORT INFORMATION
  Report Type: Spontaneous
  Country: US (occurrence: US)
  Receive Date: 20250211
  Receipt Date: 20250312
  Transmission Date: 20250408
  Serious: No
  Sender: PFIZER
  Company Number: US-PFIZER INC-202500028246

PATIENT
  Age: 72 Year
  Sex: Male
  Weight: 90.718 kg

DRUGS (2)
  1. METHYLPREDNISOLONE [Suspect]
     Active Substance: METHYLPREDNISOLONE
     Indication: Arthralgia
     Route: 048
     Dates: start: 20250205, end: 20250211
  2. ASPIRIN [Concomitant]
     Active Substance: ASPIRIN
     Dosage: UNK, ALTERNATE DAY

REACTIONS (4)
  - Dysgeusia [Recovered/Resolved]
  - Off label use [Unknown]
  - Product physical issue [Unknown]
  - Poor quality product administered [Unknown]

NARRATIVE: CASE EVENT DATE: 20250205
